FAERS Safety Report 17533468 (Version 1)
Quarter: 2020Q1

REPORT INFORMATION
  Report Type: Spontaneous
  Country: US (occurrence: US)
  Receive Date: 20200312
  Receipt Date: 20200312
  Transmission Date: 20200409
  Serious: Yes (Other)
  Sender: FDA-Public Use
  Company Number: US-VERTEX PHARMACEUTICALS-2020-002001

PATIENT
  Age: 27 Year
  Sex: Male
  Weight: 60 kg

DRUGS (3)
  1. GAMUNEX [Concomitant]
     Active Substance: HUMAN IMMUNOGLOBULIN G
  2. TRIKAFTA [Suspect]
     Active Substance: ELEXACAFTOR\IVACAFTOR\TEZACAFTOR
     Indication: CYSTIC FIBROSIS
     Dosage: 2 TABS (100MG ELEXACAFTOR/50MG TEZACAFTOR/75MG IVACAFTOR) AM AND 1 TAB (150MG IVACAFTOR) PM
     Route: 048
     Dates: start: 20191126
  3. CAYSTON [Concomitant]
     Active Substance: AZTREONAM

REACTIONS (5)
  - Respiratory arrest [Unknown]
  - Nausea [Unknown]
  - Dehydration [Unknown]
  - Diarrhoea [Unknown]
  - Vomiting [Unknown]

NARRATIVE: CASE EVENT DATE: 202001
